FAERS Safety Report 6634484-5 (Version None)
Quarter: 2010Q1

REPORT INFORMATION
  Report Type: 
  Country: None (occurrence: None)
  Receive Date: 20100315
  Receipt Date: 20100305
  Transmission Date: 20100710
  Serious: Yes (Hospitalization)
  Sender: FDA-Public Use
  Company Number: US-ROCHE-689708

PATIENT
  Sex: Female
  Weight: 86.6 kg

DRUGS (6)
  1. BEVACIZUMAB [Suspect]
     Indication: BREAST CANCER
     Dosage: DOSE AS PER PROTOCOL. CYCLE 17 STARTED ON 15 FEBRUARY 2010. MOST RECENT DOSE: 01 MARCH 2010.
     Route: 042
     Dates: start: 20081124
  2. FULVESTRANT [Suspect]
     Indication: BREAST CANCER
     Dosage: ON DAY 1 OF CYCLE 1 AS PER PROTOCOL.
     Route: 030
     Dates: start: 20081124
  3. FULVESTRANT [Suspect]
     Dosage: ON D15 OF CYCLE 1, THEREAFTER ON D1 OF EACH CYCLE AS PER PROTOCOL. CYCLE 17 STARTED ON 15 FEB 2010.
     Route: 030
  4. CLONIDINE [Concomitant]
  5. CARVEDILOL [Concomitant]
  6. TRIAMTERENE AND HYDROCHLOROTHIAZIDE [Concomitant]

REACTIONS (1)
  - PERIPHERAL MOTOR NEUROPATHY [None]
